FAERS Safety Report 7091437-3 (Version None)
Quarter: 2010Q4

REPORT INFORMATION
  Report Type: 
  Country: None (occurrence: None)
  Receive Date: 20101109
  Receipt Date: 20101024
  Transmission Date: 20110411
  Serious: Yes (Other)
  Sender: FDA-Public Use
  Company Number: US-RB-014516-10

PATIENT
  Age: 17 Year

DRUGS (1)
  1. MUCINEX DM [Suspect]
     Dosage: PATIENT TOOK FOUR TABLETS AT ONCE.
     Route: 048

REACTIONS (5)
  - DELIRIUM [None]
  - DISORIENTATION [None]
  - DIZZINESS [None]
  - MALAISE [None]
  - NAUSEA [None]
